FAERS Safety Report 5959852-6 (Version None)
Quarter: 2008Q4

REPORT INFORMATION
  Report Type: 
  Country: None (occurrence: None)
  Receive Date: 20081120
  Receipt Date: 20081117
  Transmission Date: 20090506
  Serious: Yes (Other)
  Sender: FDA-Public Use
  Company Number: B0546934A

PATIENT
  Age: 14 Year
  Sex: Female

DRUGS (1)
  1. AUGMENTIN ES-600 [Suspect]
     Indication: ACUTE TONSILLITIS
     Route: 048
     Dates: start: 20081103, end: 20081105

REACTIONS (2)
  - RASH PRURITIC [None]
  - SLEEP DISORDER [None]
